FAERS Safety Report 12083466 (Version 4)
Quarter: 2016Q2

REPORT INFORMATION
  Report Type: Spontaneous
  Country: US (occurrence: US)
  Receive Date: 20160217
  Receipt Date: 20160406
  Transmission Date: 20160815
  Serious: Yes (Life-Threatening, Hospitalization, Other)
  Sender: FDA-Public Use
  Company Number: US-PFIZER INC-2015362182

PATIENT
  Age: 75 Year
  Sex: Female
  Weight: 64 kg

DRUGS (8)
  1. LYRICA [Suspect]
     Active Substance: PREGABALIN
     Indication: FIBROMYALGIA
     Dosage: 75 MG, 2X/DAY
     Route: 048
     Dates: start: 20140501
  2. FLU SHOT [Suspect]
     Active Substance: INFLUENZA VIRUS VACCINE
     Dosage: UNK
     Dates: start: 201410
  3. METFORMIN [Concomitant]
     Active Substance: METFORMIN HYDROCHLORIDE
     Dosage: UNK
  4. TOPIRAMATE. [Concomitant]
     Active Substance: TOPIRAMATE
  5. METOPROLOL. [Concomitant]
     Active Substance: METOPROLOL
  6. LYRICA [Suspect]
     Active Substance: PREGABALIN
     Dosage: 150 MG, 2X/DAY
     Route: 048
     Dates: start: 20151019
  7. LYRICA [Suspect]
     Active Substance: PREGABALIN
     Dosage: 150 MG, 1X/DAY
     Route: 048
     Dates: end: 20160208
  8. CHICKEN POX VACCINE [Concomitant]
     Active Substance: VARICELLA-ZOSTER VIRUS STRAIN OKA/MERCK LIVE ANTIGEN
     Dates: start: 2014

REACTIONS (11)
  - Urinary tract infection [Not Recovered/Not Resolved]
  - Haemorrhage urinary tract [Unknown]
  - Fall [Unknown]
  - Transient ischaemic attack [Unknown]
  - Amnesia [Unknown]
  - Head injury [Unknown]
  - Myalgia [Unknown]
  - Cardiac arrest [Unknown]
  - Guillain-Barre syndrome [Recovering/Resolving]
  - Muscular weakness [Unknown]
  - Energy increased [Not Recovered/Not Resolved]

NARRATIVE: CASE EVENT DATE: 201503
